FAERS Safety Report 22218788 (Version 1)
Quarter: 2023Q2

REPORT INFORMATION
  Report Type: Spontaneous
  Country: US (occurrence: None)
  Receive Date: 20230415
  Receipt Date: 20230415
  Transmission Date: 20230722
  Serious: Yes (Other)
  Sender: FDA-Public Use
  Company Number: None

PATIENT
  Age: 53 Year
  Sex: Female

DRUGS (1)
  1. LINEZOLID [Suspect]
     Active Substance: LINEZOLID
     Dosage: FREQUENCY : TWICE A DAY;?
     Route: 042

REACTIONS (2)
  - Lactic acidosis [None]
  - Hypotension [None]

NARRATIVE: CASE EVENT DATE: 20220816
